FAERS Safety Report 21031104 (Version 2)
Quarter: 2023Q2

REPORT INFORMATION
  Report Type: Spontaneous
  Country: US (occurrence: None)
  Receive Date: 20220701
  Receipt Date: 20230517
  Transmission Date: 20230721
  Serious: No
  Sender: FDA-Public Use
  Company Number: US-ROCHE-3045822

PATIENT
  Sex: Female

DRUGS (2)
  1. ACTEMRA [Suspect]
     Active Substance: TOCILIZUMAB
     Indication: Giant cell arteritis
     Dosage: (STRENGTH: 162MG/0.9M)
     Route: 058
     Dates: start: 20220223
  2. ACTEMRA [Suspect]
     Active Substance: TOCILIZUMAB

REACTIONS (5)
  - Diarrhoea [Unknown]
  - Vision blurred [Unknown]
  - Gastrooesophageal reflux disease [Unknown]
  - Gait disturbance [Unknown]
  - Tremor [Unknown]
